FAERS Safety Report 5676574-X (Version None)
Quarter: 2008Q1

REPORT INFORMATION
  Report Type: 
  Country: None (occurrence: None)
  Receive Date: 20080321
  Receipt Date: 20080321
  Transmission Date: 20080703
  Serious: No
  Sender: FDA-Public Use
  Company Number: None

PATIENT
  Age: 35 Year
  Sex: Female

DRUGS (1)
  1. EFFEXOR XR [Suspect]
     Indication: DEPRESSION
     Dosage: FALL 2007

REACTIONS (3)
  - CONTUSION [None]
  - HAEMORRHAGIC DIATHESIS [None]
  - SIMILAR REACTION ON PREVIOUS EXPOSURE TO DRUG [None]
